FAERS Safety Report 13138260 (Version 1)
Quarter: 2017Q1

REPORT INFORMATION
  Report Type: Spontaneous
  Country: US (occurrence: US)
  Receive Date: 20170122
  Receipt Date: 20170122
  Transmission Date: 20170428
  Serious: No
  Sender: FDA-Public Use
  Company Number: None

PATIENT
  Age: 71 Year
  Sex: Male
  Weight: 89.2 kg

DRUGS (1)
  1. INTRON A [Suspect]
     Active Substance: INTERFERON ALFA-2B
     Dosage: TOTAL DOSE ADMINISTERED - 27.4MU
     Dates: end: 20140616

REACTIONS (6)
  - Presyncope [None]
  - Aphasia [None]
  - Dysarthria [None]
  - Fatigue [None]
  - Dyspnoea [None]
  - Neurological symptom [None]

NARRATIVE: CASE EVENT DATE: 20140616
